FAERS Safety Report 24290477 (Version 1)
Quarter: 2024Q3

REPORT INFORMATION
  Report Type: Spontaneous
  Country: US (occurrence: US)
  Receive Date: 20240906
  Receipt Date: 20240906
  Transmission Date: 20241017
  Serious: Yes (Hospitalization)
  Sender: RANBAXY
  Company Number: US-SUN PHARMACEUTICAL INDUSTRIES LTD-2024R1-465459

PATIENT
  Age: 48 Year
  Sex: Female

DRUGS (4)
  1. DOXORUBICIN HYDROCHLORIDE [Suspect]
     Active Substance: DOXORUBICIN HYDROCHLORIDE
     Indication: Product used for unknown indication
     Dosage: 84 MILLIGRAM (Q 28D)
     Route: 065
     Dates: start: 20240626, end: 20240724
  2. AVELUMAB [Suspect]
     Active Substance: AVELUMAB
     Indication: Breast cancer
     Dosage: 876 MILLIGRAM
     Route: 065
     Dates: start: 20240626, end: 20240807
  3. BINIMETINIB [Suspect]
     Active Substance: BINIMETINIB
     Indication: Breast cancer
     Dosage: 45 MILLIGRAM , D-15
     Route: 065
     Dates: start: 20240530, end: 20240806
  4. BINIMETINIB [Suspect]
     Active Substance: BINIMETINIB
     Dosage: 30 MILLIGRAM, DAILY
     Route: 065

REACTIONS (2)
  - Abdominal pain [Unknown]
  - Disease progression [Unknown]

NARRATIVE: CASE EVENT DATE: 20240817
